FAERS Safety Report 18012805 (Version 1)
Quarter: 2020Q3

REPORT INFORMATION
  Report Type: Spontaneous
  Country: US (occurrence: US)
  Receive Date: 20200711
  Receipt Date: 20200711
  Transmission Date: 20201103
  Serious: Yes (Other)
  Sender: FDA-Public Use
  Company Number: None

PATIENT
  Age: 33 Year
  Sex: Female
  Weight: 74.25 kg

DRUGS (1)
  1. BLUMEN ADVANCED HAND SANITIZER [Suspect]
     Active Substance: ALCOHOL
     Indication: INFECTION PROPHYLAXIS
     Dosage: ?          QUANTITY:7.5 OUNCE(S);?
     Route: 061
     Dates: start: 20200401, end: 20200710

REACTIONS (4)
  - Maternal exposure during pregnancy [None]
  - Abortion spontaneous [None]
  - Foetal exposure during pregnancy [None]
  - Dizziness [None]

NARRATIVE: CASE EVENT DATE: 20200701
